FAERS Safety Report 6070330-9 (Version None)
Quarter: 2009Q1

REPORT INFORMATION
  Report Type: 
  Country: None (occurrence: None)
  Receive Date: 20090209
  Receipt Date: 20090204
  Transmission Date: 20090719
  Serious: Yes (Hospitalization)
  Sender: FDA-Public Use
  Company Number: GB-TEVA-184959ISR

PATIENT
  Sex: Female

DRUGS (4)
  1. NIFEDIPINE [Suspect]
     Indication: BLOOD PRESSURE
  2. HYDRALAZINE HCL [Suspect]
     Indication: BLOOD PRESSURE ABNORMAL
  3. LABETALOL HCL [Suspect]
  4. METHYLDOPA [Suspect]

REACTIONS (3)
  - BLOOD PRESSURE INCREASED [None]
  - CAESAREAN SECTION [None]
  - DRUG EXPOSURE DURING PREGNANCY [None]
